FAERS Safety Report 17925585 (Version 3)
Quarter: 2021Q2

REPORT INFORMATION
  Report Type: Report from Study
  Country: CN (occurrence: CN)
  Receive Date: 20200622
  Receipt Date: 20210519
  Transmission Date: 20210717
  Serious: Yes (Hospitalization)
  Sender: FDA-Public Use
  Company Number: CN-CELGENEUS-CHN-20200604661

PATIENT
  Age: 71 Year
  Sex: Male
  Weight: 50 kg

DRUGS (34)
  1. ISATUXIMAB [Suspect]
     Active Substance: ISATUXIMAB
     Indication: PLASMA CELL MYELOMA
     Dosage: 10 MILLIGRAM/KILOGRAM
     Route: 042
     Dates: start: 20200604, end: 20200604
  2. DIPHENHYDRAMINE. [Concomitant]
     Active Substance: DIPHENHYDRAMINE
     Indication: PROPHYLAXIS
     Dosage: 40 MILLIGRAM
     Route: 041
     Dates: start: 20200326, end: 20200326
  3. DIPHENHYDRAMINE. [Concomitant]
     Active Substance: DIPHENHYDRAMINE
     Dosage: 40 MILLIGRAM
     Route: 041
     Dates: start: 20200521, end: 20200521
  4. CIMETIDINE [Concomitant]
     Active Substance: CIMETIDINE
     Dosage: 200 MILLIGRAM
     Route: 041
     Dates: start: 20200521, end: 20200521
  5. CELECOXIB. [Concomitant]
     Active Substance: CELECOXIB
     Dosage: 200 MILLIGRAM
     Route: 048
     Dates: start: 20200409, end: 20200409
  6. LEVOFLOXACIN. [Concomitant]
     Active Substance: LEVOFLOXACIN
     Indication: PRODUCT USED FOR UNKNOWN INDICATION
     Route: 048
     Dates: start: 20190904
  7. REVLIMID [Suspect]
     Active Substance: LENALIDOMIDE
     Dosage: 10 MILLIGRAM??CYCLE 12
     Route: 048
  8. CIMETIDINE [Concomitant]
     Active Substance: CIMETIDINE
     Dosage: 200 MILLIGRAM
     Route: 041
     Dates: start: 20200409, end: 20200409
  9. CIMETIDINE [Concomitant]
     Active Substance: CIMETIDINE
     Route: 065
     Dates: start: 20200604, end: 20200604
  10. CELECOXIB. [Concomitant]
     Active Substance: CELECOXIB
     Dosage: 200 MILLIGRAM
     Route: 048
     Dates: start: 20200521, end: 20200521
  11. ASPIRIN EC [Concomitant]
     Active Substance: ASPIRIN
     Indication: PRODUCT USED FOR UNKNOWN INDICATION
     Route: 048
     Dates: start: 20190904
  12. ISATUXIMAB [Suspect]
     Active Substance: ISATUXIMAB
     Indication: PLASMA CELL MYELOMA
     Dosage: 10 MILLIGRAM/KILOGRAM
     Route: 042
     Dates: start: 20190523, end: 20190523
  13. DIPHENHYDRAMINE. [Concomitant]
     Active Substance: DIPHENHYDRAMINE
     Route: 065
     Dates: start: 20200604, end: 20200604
  14. CIMETIDINE [Concomitant]
     Active Substance: CIMETIDINE
     Dosage: 200 MILLIGRAM
     Route: 041
     Dates: start: 20200507, end: 20200507
  15. REVLIMID [Suspect]
     Active Substance: LENALIDOMIDE
     Dosage: 10 MILLIGRAM
     Route: 048
     Dates: start: 20200603
  16. DEXAMETHASONE. [Suspect]
     Active Substance: DEXAMETHASONE
     Indication: PLASMA CELL MYELOMA
     Dosage: 20 MILLIGRAM
     Route: 042
     Dates: start: 20190523, end: 20190523
  17. VELCADE [Suspect]
     Active Substance: BORTEZOMIB
     Dosage: 1.3 MILLIGRAM/SQ. METER
     Route: 058
  18. CIMETIDINE [Concomitant]
     Active Substance: CIMETIDINE
     Indication: PROPHYLAXIS
     Dosage: 200 MILLIGRAM
     Route: 041
     Dates: start: 20200312, end: 20200312
  19. DIPHENHYDRAMINE. [Concomitant]
     Active Substance: DIPHENHYDRAMINE
     Dosage: 40 MILLIGRAM
     Route: 041
     Dates: start: 20200423, end: 20200423
  20. VELCADE [Suspect]
     Active Substance: BORTEZOMIB
     Indication: PLASMA CELL MYELOMA
     Dosage: 1.3 MILLIGRAM/SQ. METER
     Route: 058
     Dates: start: 20190523, end: 20190523
  21. CIMETIDINE [Concomitant]
     Active Substance: CIMETIDINE
     Dosage: 200 MILLIGRAM
     Route: 041
     Dates: start: 20200423, end: 20200423
  22. CELECOXIB. [Concomitant]
     Active Substance: CELECOXIB
     Indication: PROPHYLAXIS
     Dosage: 200 MILLIGRAM
     Route: 048
     Dates: start: 20200312, end: 20200312
  23. CELECOXIB. [Concomitant]
     Active Substance: CELECOXIB
     Dosage: 200 MILLIGRAM
     Route: 048
     Dates: start: 20200423, end: 20200423
  24. ACICLOVIR [Concomitant]
     Active Substance: ACYCLOVIR
     Indication: PRODUCT USED FOR UNKNOWN INDICATION
     Route: 048
     Dates: start: 20190904
  25. REVLIMID [Suspect]
     Active Substance: LENALIDOMIDE
     Indication: PLASMA CELL MYELOMA
     Dosage: 10 MILLIGRAM
     Route: 048
     Dates: start: 20190523, end: 20190529
  26. CIMETIDINE [Concomitant]
     Active Substance: CIMETIDINE
     Dosage: 200 MILLIGRAM
     Route: 041
     Dates: start: 20200326, end: 20200326
  27. CELECOXIB. [Concomitant]
     Active Substance: CELECOXIB
     Dosage: 200 MILLIGRAM
     Route: 048
     Dates: start: 20200507, end: 20200507
  28. CELECOXIB. [Concomitant]
     Active Substance: CELECOXIB
     Route: 065
     Dates: start: 20200604, end: 20200604
  29. ENTERAL NUTRITIONAL POWDER [Concomitant]
     Indication: PRODUCT USED FOR UNKNOWN INDICATION
     Route: 065
     Dates: start: 20190904
  30. DEXAMETHASONE. [Suspect]
     Active Substance: DEXAMETHASONE
     Dosage: 20 MILLIGRAM
     Route: 042
     Dates: start: 20200604, end: 20200604
  31. DIPHENHYDRAMINE. [Concomitant]
     Active Substance: DIPHENHYDRAMINE
     Dosage: 40 MILLIGRAM
     Route: 041
     Dates: start: 20200409, end: 20200409
  32. DIPHENHYDRAMINE. [Concomitant]
     Active Substance: DIPHENHYDRAMINE
     Dosage: 40 MILLIGRAM
     Route: 041
     Dates: start: 20200507, end: 20200507
  33. CELECOXIB. [Concomitant]
     Active Substance: CELECOXIB
     Dosage: 200 MILLIGRAM
     Route: 048
     Dates: start: 20200326, end: 20200326
  34. PROTEIN HYDROLYSATE [Concomitant]
     Active Substance: PROTEIN HYDROLYSATE
     Indication: PRODUCT USED FOR UNKNOWN INDICATION
     Route: 048
     Dates: start: 20191004

REACTIONS (1)
  - Inguinal hernia [Recovered/Resolved]

NARRATIVE: CASE EVENT DATE: 20200607
